FAERS Safety Report 8475836-0 (Version None)
Quarter: 2012Q2

REPORT INFORMATION
  Report Type: 
  Country: None (occurrence: None)
  Receive Date: 20120621
  Receipt Date: 20120612
  Transmission Date: 20120825
  Serious: Yes (Hospitalization, Other)
  Sender: FDA-Public Use
  Company Number: 2012SP032499

PATIENT
  Age: 87 Year
  Sex: Female
  Weight: 86 kg

DRUGS (12)
  1. MOVIPREP [Concomitant]
  2. SINTROM [Concomitant]
  3. LASIX [Concomitant]
  4. CALCIMAGON D3 [Concomitant]
  5. AUGMENTIN '875' [Suspect]
     Indication: BRONCHOPNEUMONIA
     Dosage: 1.2 GM;TID;IV
     Route: 042
     Dates: start: 20120420, end: 20120425
  6. METOPROLOL TARTRATE [Concomitant]
  7. ENOXAPARIN SODIUM [Concomitant]
  8. REMERON [Suspect]
     Indication: PRODUCT USED FOR UNKNOWN INDICATION
     Dosage: 15 MG;PO ; 7.5 MG
     Route: 048
     Dates: end: 20120425
  9. REMERON [Suspect]
     Indication: PRODUCT USED FOR UNKNOWN INDICATION
     Dosage: 15 MG;PO ; 7.5 MG
     Route: 048
     Dates: start: 20120425
  10. ACETAMINOPHEN [Concomitant]
  11. TORSEMIDE [Concomitant]
  12. KEPPRA [Suspect]
     Indication: BRONCHOPNEUMONIA
     Dosage: 1000 MG;BID;PO
     Route: 048
     Dates: start: 20120425, end: 20120426

REACTIONS (9)
  - HYPOXIA [None]
  - BRONCHOPNEUMONIA [None]
  - GRAND MAL CONVULSION [None]
  - SOMNOLENCE [None]
  - IMMOBILE [None]
  - EPILEPSY [None]
  - RENAL FAILURE [None]
  - GENERAL PHYSICAL HEALTH DETERIORATION [None]
  - CARDIAC FAILURE [None]
